FAERS Safety Report 13263477 (Version 1)
Quarter: 2017Q1

REPORT INFORMATION
  Report Type: Spontaneous
  Country: AR (occurrence: AR)
  Receive Date: 20170223
  Receipt Date: 20170223
  Transmission Date: 20170428
  Serious: Yes (Disabling)
  Sender: FDA-Public Use
  Company Number: AR-B.I. PHARMACEUTICALS,INC./RIDGEFIELD-2017-BI-009807

PATIENT
  Age: 68 Year
  Sex: Male

DRUGS (5)
  1. JARDIANCE [Suspect]
     Active Substance: EMPAGLIFLOZIN
     Route: 048
  2. AMLODIPINE [Concomitant]
     Active Substance: AMLODIPINE BESYLATE
     Indication: MYOCARDIAL ISCHAEMIA
     Route: 065
  3. JARDIANCE [Suspect]
     Active Substance: EMPAGLIFLOZIN
     Indication: TYPE 2 DIABETES MELLITUS
     Route: 048
     Dates: start: 20161001
  4. HYDROCHLOROTHIAZIDE. [Concomitant]
     Active Substance: HYDROCHLOROTHIAZIDE
     Indication: MYOCARDIAL ISCHAEMIA
     Route: 065
  5. VALSARTAN. [Concomitant]
     Active Substance: VALSARTAN
     Indication: MYOCARDIAL ISCHAEMIA
     Route: 065

REACTIONS (3)
  - Altered visual depth perception [Recovering/Resolving]
  - Visual acuity reduced [Recovering/Resolving]
  - Diabetic retinopathy [Recovering/Resolving]

NARRATIVE: CASE EVENT DATE: 20170117
